FAERS Safety Report 5690566-6 (Version None)
Quarter: 2008Q1

REPORT INFORMATION
  Report Type: 
  Country: None (occurrence: None)
  Receive Date: 20080331
  Receipt Date: 20080331
  Transmission Date: 20080703
  Serious: Yes (Hospitalization)
  Sender: FDA-Public Use
  Company Number: None

PATIENT
  Age: 27 Year
  Sex: Female
  Weight: 58.9676 kg

DRUGS (2)
  1. TRAMADOL HCL [Suspect]
     Indication: PAIN
     Dosage: 50 MG Q4H PRN PO
     Route: 048
     Dates: start: 20080317, end: 20080319
  2. CITALOPRAM HYDROBROMIDE [Suspect]
     Dosage: 60MG DAILY PO
     Route: 048

REACTIONS (1)
  - CONVULSION [None]
